FAERS Safety Report 20133467 (Version 1)
Quarter: 2021Q4

REPORT INFORMATION
  Report Type: Spontaneous
  Country: US (occurrence: US)
  Receive Date: 20211201
  Receipt Date: 20211201
  Transmission Date: 20220303
  Serious: No
  Sender: FDA-Public Use
  Company Number: US-CHIESI-2021CHF01667

PATIENT
  Sex: Female

DRUGS (2)
  1. BETHKIS [Suspect]
     Active Substance: TOBRAMYCIN
     Indication: Bronchiectasis
     Dosage: 300 MILLIGRAM, BID
     Route: 055
  2. CAYSTON [Concomitant]
     Active Substance: AZTREONAM
     Indication: Product used for unknown indication
     Dosage: UNK

REACTIONS (2)
  - Drug hypersensitivity [Unknown]
  - Product use in unapproved indication [Unknown]
